FAERS Safety Report 7607251-3 (Version None)
Quarter: 2011Q3

REPORT INFORMATION
  Report Type: 
  Country: None (occurrence: None)
  Receive Date: 20110712
  Receipt Date: 20110712
  Transmission Date: 20111222
  Serious: No
  Sender: FDA-Public Use
  Company Number: None

PATIENT
  Age: 68 Year
  Sex: Male
  Weight: 115 kg

DRUGS (2)
  1. ENALAPRIL MALEATE [Suspect]
     Dosage: 1 TAB BID PO
     Route: 048
     Dates: start: 20080220, end: 20110524
  2. LOSARTAN POTASSIUM [Suspect]
     Dosage: 50 MG EVERY DAY PO
     Route: 048
     Dates: start: 20050615

REACTIONS (1)
  - ANGIOEDEMA [None]
